FAERS Safety Report 12933609 (Version 1)
Quarter: 2016Q4

REPORT INFORMATION
  Report Type: Spontaneous
  Country: US (occurrence: US)
  Receive Date: 20161111
  Receipt Date: 20161111
  Transmission Date: 20170207
  Serious: No
  Sender: FDA-Public Use
  Company Number: US-BAYER-2016-216059

PATIENT
  Age: 46 Year
  Sex: Female

DRUGS (1)
  1. ULTRAVIST [Suspect]
     Active Substance: IOPROMIDE
     Indication: HAEMATURIA
     Dosage: 100 MG, ONCE
     Route: 017
     Dates: start: 20161109, end: 20161109

REACTIONS (2)
  - Urticaria [None]
  - Product use issue [None]

NARRATIVE: CASE EVENT DATE: 20161109
